FAERS Safety Report 4622862-5 (Version None)
Quarter: 2005Q1

REPORT INFORMATION
  Report Type: 
  Country: None (occurrence: None)
  Receive Date: 20050330
  Receipt Date: 20050323
  Transmission Date: 20050727
  Serious: Yes (Other)
  Sender: FDA-Public Use
  Company Number: JP-GLAXOSMITHKLINE-B0375984A

PATIENT
  Age: 68 Year
  Sex: Female

DRUGS (5)
  1. PAXIL [Suspect]
     Indication: DEPRESSION
     Route: 048
     Dates: end: 20050304
  2. DIGOXIN [Suspect]
     Indication: ATRIAL FIBRILLATION
     Dosage: .25MG PER DAY
     Route: 065
  3. WARFARIN [Concomitant]
     Route: 048
  4. PURSENNID [Concomitant]
     Route: 048
  5. RISUMIC [Concomitant]
     Route: 048

REACTIONS (2)
  - DRUG INTERACTION [None]
  - THERAPEUTIC AGENT TOXICITY [None]
